FAERS Safety Report 13206382 (Version 2)
Quarter: 2017Q2

REPORT INFORMATION
  Report Type: Spontaneous
  Country: US (occurrence: US)
  Receive Date: 20170209
  Receipt Date: 20170503
  Transmission Date: 20170830
  Serious: No
  Sender: FDA-Public Use
  Company Number: US-SA-2016SA198256

PATIENT
  Age: 81 Year
  Sex: Female

DRUGS (19)
  1. GLYXAMBI [Concomitant]
     Active Substance: EMPAGLIFLOZIN\LINAGLIPTIN
     Dosage: 25-5 MG
  2. POLYETHYLENE GLYCOL [Concomitant]
     Active Substance: POLYETHYLENE GLYCOLS
     Dosage: POW 3350 NF
  3. ALIROCUMAB PREFILLED PEN [Concomitant]
     Active Substance: ALIROCUMAB
     Indication: TYPE V HYPERLIPIDAEMIA
     Dates: start: 20160725
  4. ATORVASTATIN [Concomitant]
     Active Substance: ATORVASTATIN
  5. ESTRACE [Concomitant]
     Active Substance: ESTRADIOL
     Dosage: 0.1MG/GM
  6. LEVOTHYROXINE. [Concomitant]
     Active Substance: LEVOTHYROXINE
  7. LYRICA [Concomitant]
     Active Substance: PREGABALIN
  8. TOLTERODINE [Concomitant]
     Active Substance: TOLTERODINE
  9. SUCRALFATE. [Concomitant]
     Active Substance: SUCRALFATE
  10. GABAPENTIN. [Concomitant]
     Active Substance: GABAPENTIN
  11. METOPROLOL. [Concomitant]
     Active Substance: METOPROLOL
  12. METFORMIN [Concomitant]
     Active Substance: METFORMIN HYDROCHLORIDE
     Dosage: 500 MG
  13. FLEXPEN [Concomitant]
     Active Substance: UNSPECIFIED INGREDIENT
  14. NIFEDIPINE. [Concomitant]
     Active Substance: NIFEDIPINE
  15. VALSARTAN. [Concomitant]
     Active Substance: VALSARTAN
  16. PRALUENT [Suspect]
     Active Substance: ALIROCUMAB
     Indication: TYPE V HYPERLIPIDAEMIA
     Route: 058
     Dates: start: 20160725
  17. DEXILANT [Concomitant]
     Active Substance: DEXLANSOPRAZOLE
  18. LEVEMIR [Concomitant]
     Active Substance: INSULIN DETEMIR
  19. RANEXA [Concomitant]
     Active Substance: RANOLAZINE
     Dosage: 1000 MG

REACTIONS (4)
  - Injection site mass [Not Recovered/Not Resolved]
  - Injection site urticaria [Recovered/Resolved]
  - Abdominal discomfort [Not Recovered/Not Resolved]
  - Diarrhoea [Not Recovered/Not Resolved]

NARRATIVE: CASE EVENT DATE: 2016
